FAERS Safety Report 17011937 (Version 1)
Quarter: 2019Q4

REPORT INFORMATION
  Report Type: Spontaneous
  Country: FR (occurrence: FR)
  Receive Date: 20191108
  Receipt Date: 20191108
  Transmission Date: 20200122
  Serious: Yes (Other)
  Sender: FDA-Public Use
  Company Number: FR-NAPPMUNDI-GBR-2019-0072302

PATIENT
  Age: 83 Year
  Sex: Male
  Weight: 90 kg

DRUGS (23)
  1. VENTOLINE                          /00139501/ [Concomitant]
     Active Substance: ALBUTEROL
     Dosage: 3 DF, DAILY
     Route: 055
  2. EUPRESSYL                          /00631801/ [Concomitant]
     Active Substance: URAPIDIL
     Dosage: 1 DF, DAILY
     Route: 048
  3. CANDESARTAN CILEXETIL. [Concomitant]
     Active Substance: CANDESARTAN CILEXETIL
     Dosage: 8 MG, DAILY
     Route: 048
  4. PARACETAMOL [Suspect]
     Active Substance: ACETAMINOPHEN
     Indication: PAIN
     Dosage: 3 G, DAILY
     Route: 048
     Dates: start: 20190910
  5. CASODEX [Suspect]
     Active Substance: BICALUTAMIDE
     Indication: PROSTATE CANCER
     Dosage: 1 DF, DAILY
     Route: 048
     Dates: start: 20190807, end: 20190905
  6. TARDYFERON [Concomitant]
     Active Substance: FERROUS SULFATE
     Dosage: 1 DF, DAILY
     Route: 048
  7. DECAPEPTYL                         /00486501/ [Concomitant]
     Active Substance: GONADORELIN
     Dosage: 1 DF, DAILY
     Route: 058
     Dates: start: 20190822
  8. BACTRIM [Concomitant]
     Active Substance: SULFAMETHOXAZOLE\TRIMETHOPRIM
     Indication: URINARY TRACT INFECTION
     Dosage: UNK (NON-RENSEIGNEE)
     Route: 048
     Dates: start: 20190721, end: 20190729
  9. TINZAPARIN SODIUM [Concomitant]
     Active Substance: TINZAPARIN SODIUM
     Dosage: 17000 IU, DAILY
     Route: 058
     Dates: start: 20190705, end: 20190808
  10. LANSOPRAZOLE. [Concomitant]
     Active Substance: LANSOPRAZOLE
     Dosage: 15 MG, DAILY
     Route: 048
  11. CEFEPIME [Concomitant]
     Active Substance: CEFEPIME HYDROCHLORIDE
     Dosage: 4 G, DAILY
     Route: 042
     Dates: start: 20190421, end: 20190805
  12. CORTANCYL [Concomitant]
     Active Substance: PREDNISONE
     Dosage: 10 MG, DAILY
     Route: 048
     Dates: start: 20190822
  13. VESICARE [Concomitant]
     Active Substance: SOLIFENACIN SUCCINATE
     Dosage: 1 DF, DAILY
     Route: 048
     Dates: end: 20190822
  14. SPECIAFOLDINE [Concomitant]
     Active Substance: FOLIC ACID
     Dosage: 3 DF, DAILY
     Route: 048
  15. ABIRATERONE ACETATE. [Concomitant]
     Active Substance: ABIRATERONE ACETATE
     Dosage: 1000 MG, DAILY
     Route: 048
     Dates: start: 20190822
  16. KARDEGIC [Concomitant]
     Active Substance: ASPIRIN DL-LYSINE
     Dosage: 1 DF, DAILY
     Route: 048
  17. LACTULOSE. [Concomitant]
     Active Substance: LACTULOSE
     Dosage: 2 DF, DAILY
     Route: 048
     Dates: start: 201909
  18. OXYCODONE HYDROCHLORIDE. [Suspect]
     Active Substance: OXYCODONE HYDROCHLORIDE
     Indication: PAIN
     Dosage: 30 MG, DAILY
     Route: 048
     Dates: start: 20190912
  19. XATRAL [Suspect]
     Active Substance: ALFUZOSIN
     Indication: PROSTATE CANCER
     Dosage: 1 DF, DAILY
     Route: 048
     Dates: start: 201908
  20. LYRICA [Suspect]
     Active Substance: PREGABALIN
     Indication: PRODUCT USED FOR UNKNOWN INDICATION
     Dosage: 2 DF, DAILY
     Route: 048
  21. AMLOR [Concomitant]
     Active Substance: AMLODIPINE BESYLATE
     Dosage: UNK (NON RENSEIGNEE)
     Route: 048
     Dates: start: 20190921
  22. OFLOXACINE [Concomitant]
     Active Substance: OFLOXACIN
     Dosage: 400 MG, DAILY
     Route: 048
     Dates: start: 20190807, end: 20190808
  23. ZYMAD [Concomitant]
     Active Substance: CHOLECALCIFEROL
     Dosage: 1 DF, EVERY 14 DAYS
     Dates: start: 20190910

REACTIONS (3)
  - Transaminases increased [Recovered/Resolved]
  - Condition aggravated [Not Recovered/Not Resolved]
  - Gamma-glutamyltransferase increased [Not Recovered/Not Resolved]

NARRATIVE: CASE EVENT DATE: 20190921
